FAERS Safety Report 9398314 (Version 1)
Quarter: 2013Q3

REPORT INFORMATION
  Report Type: Spontaneous
  Country: US (occurrence: US)
  Receive Date: 20130712
  Receipt Date: 20130712
  Transmission Date: 20140515
  Serious: No
  Sender: FDA-Public Use
  Company Number: US-GLAXOSMITHKLINE-A1004896A

PATIENT
  Age: 58 Year
  Sex: Female

DRUGS (8)
  1. FLOVENT [Suspect]
     Indication: ASTHMA
     Dosage: 1PUFF TWICE PER DAY
     Route: 055
  2. ADVAIR [Suspect]
     Indication: ASTHMA
     Dosage: 1PUFF TWICE PER DAY
     Route: 055
  3. LISINOPRIL [Suspect]
     Indication: PRODUCT USED FOR UNKNOWN INDICATION
     Route: 065
  4. BABY ASPIRIN [Concomitant]
  5. B12 [Concomitant]
  6. FISH OIL [Concomitant]
  7. VENTOLIN HFA [Concomitant]
  8. RANITIDINE [Concomitant]

REACTIONS (9)
  - Hypertension [Not Recovered/Not Resolved]
  - Malaise [Unknown]
  - Cough [Unknown]
  - Dry throat [Unknown]
  - Throat tightness [Unknown]
  - Dizziness [Unknown]
  - Dizziness [Unknown]
  - Dry mouth [Unknown]
  - Oropharyngeal swelling [Unknown]
